FAERS Safety Report 4562721-X (Version None)
Quarter: 2005Q1

REPORT INFORMATION
  Report Type: 
  Country: None (occurrence: None)
  Receive Date: 20050124
  Receipt Date: 20050111
  Transmission Date: 20050727
  Serious: Yes (Hospitalization)
  Sender: FDA-Public Use
  Company Number: 2005012131

PATIENT
  Age: 58 Year
  Sex: Male
  Weight: 89.3 kg

DRUGS (14)
  1. ZITHROMAX [Suspect]
     Indication: INFECTION PROPHYLAXIS
     Dosage: 500 MG (500 MG 1 IN 1 D) ORAL
     Route: 048
     Dates: start: 20041202, end: 20041206
  2. NIFEDIPINE [Concomitant]
  3. WARFARIN SODIUM [Concomitant]
  4. HEPARIN-FRACTION, SODIUM SALT (HEPARIN-FRACTION, SODIUM SALT) [Concomitant]
  5. DESLORATADINE (DESLORATADINE) [Concomitant]
  6. SPIRONOLACTONE [Concomitant]
  7. FUROSEMIDE [Concomitant]
  8. RITUXIMAB (RITUXIMAB) [Concomitant]
  9. CYCLOPHOSPHAMIDE [Concomitant]
  10. VINCRISTINE [Concomitant]
  11. PREDNISOLONE [Concomitant]
  12. FLUDARABINE PHOSPHATE [Concomitant]
  13. MITOXANTRONE [Concomitant]
  14. ACYCLOVIR [Concomitant]

REACTIONS (1)
  - AGRANULOCYTOSIS [None]
